FAERS Safety Report 10039173 (Version 2)
Quarter: 2014Q2

REPORT INFORMATION
  Report Type: Spontaneous
  Country: JP (occurrence: JP)
  Receive Date: 20140326
  Receipt Date: 20140402
  Transmission Date: 20141212
  Serious: Yes (Death, Other)
  Sender: FDA-Public Use
  Company Number: JP-OTSUKA-JP-2014-12700

PATIENT
  Age: 49 Year
  Sex: Female

DRUGS (1)
  1. SAMSCA [Suspect]
     Indication: ASCITES
     Dosage: 3.75 MG MILLIGRAM(S), DAILY DOSE
     Route: 048
     Dates: start: 20131010, end: 20140215

REACTIONS (2)
  - Respiratory failure [Fatal]
  - Lymphangiosis carcinomatosa [Unknown]
